FAERS Safety Report 5277116-3 (Version None)
Quarter: 2007Q1

REPORT INFORMATION
  Report Type: 
  Country: None (occurrence: None)
  Receive Date: 20061213
  Receipt Date: 20050420
  Transmission Date: 20070707
  Serious: No
  Sender: FDA-Public Use
  Company Number: 2005UW02839

PATIENT
  Age: 11 Year
  Sex: Male
  Weight: 42.6381 kg

DRUGS (3)
  1. SEROQUEL [Suspect]
     Indication: AUTISM
     Dosage: 100 MG QD PO
     Route: 048
     Dates: start: 20040301, end: 20040401
  2. PROZAC [Concomitant]
  3. ABILIFY [Concomitant]

REACTIONS (1)
  - CONVULSION [None]
